FAERS Safety Report 9916082 (Version 2)
Quarter: 2014Q1

REPORT INFORMATION
  Report Type: Spontaneous
  Country: FR (occurrence: FR)
  Receive Date: 20140221
  Receipt Date: 20140305
  Transmission Date: 20141002
  Serious: Yes (Disabling, Other)
  Sender: FDA-Public Use
  Company Number: FR-INCYTE CORPORATION-2014IN000367

PATIENT
  Age: 75 Year
  Sex: Female

DRUGS (7)
  1. JAKAVI [Suspect]
     Indication: MYELOFIBROSIS
     Dosage: UNK UKN, UNK
     Route: 065
     Dates: start: 201311
  2. ALDACTONE                          /00006201/ [Concomitant]
  3. COKENZEN [Concomitant]
  4. TRIATEC                            /00885601/ [Concomitant]
  5. PLAVIX [Concomitant]
  6. INSULIN [Concomitant]
  7. SINGULAR [Concomitant]

REACTIONS (2)
  - Retinal artery thrombosis [Unknown]
  - Retinal vein occlusion [Unknown]
